FAERS Safety Report 9347870 (Version 1)
Quarter: 2013Q2

REPORT INFORMATION
  Report Type: Spontaneous
  Country: CA (occurrence: CA)
  Receive Date: 20130614
  Receipt Date: 20130614
  Transmission Date: 20140414
  Serious: Yes (Other)
  Sender: FDA-Public Use
  Company Number: CA-CELGENEUS-028-21880-13061043

PATIENT
  Age: 48 Year
  Sex: Male
  Weight: 113.5 kg

DRUGS (1)
  1. REVLIMID [Suspect]
     Indication: PLASMA CELL MYELOMA
     Dosage: 10 MILLIGRAM
     Route: 048
     Dates: start: 20130510, end: 20130531

REACTIONS (2)
  - Diabetes mellitus [Not Recovered/Not Resolved]
  - Genital rash [Not Recovered/Not Resolved]
